FAERS Safety Report 21621563 (Version 3)
Quarter: 2022Q4

REPORT INFORMATION
  Report Type: Spontaneous
  Country: US (occurrence: US)
  Receive Date: 20221121
  Receipt Date: 20221226
  Transmission Date: 20230113
  Serious: Yes (Hospitalization)
  Sender: FDA-Public Use
  Company Number: US-GBT-018012

PATIENT
  Sex: Female

DRUGS (2)
  1. OXBRYTA [Suspect]
     Active Substance: VOXELOTOR
     Indication: Product used for unknown indication
     Route: 048
     Dates: start: 2022
  2. OXBRYTA [Suspect]
     Active Substance: VOXELOTOR
     Indication: Product used for unknown indication
     Route: 048

REACTIONS (10)
  - Sickle cell anaemia with crisis [Unknown]
  - Nausea [Not Recovered/Not Resolved]
  - Nasopharyngitis [Unknown]
  - Off label use [Unknown]
  - Diarrhoea [Recovered/Resolved]
  - Product dose omission issue [Unknown]
  - Vomiting [Unknown]
  - Abdominal pain upper [Unknown]
  - Frequent bowel movements [Unknown]
  - Feeling hot [Not Recovered/Not Resolved]

NARRATIVE: CASE EVENT DATE: 20220101
